FAERS Safety Report 18328197 (Version 1)
Quarter: 2020Q3

REPORT INFORMATION
  Report Type: Spontaneous
  Country: DE (occurrence: DE)
  Receive Date: 20200930
  Receipt Date: 20200930
  Transmission Date: 20201103
  Serious: Yes (Hospitalization)
  Sender: FDA-Public Use
  Company Number: DE-TEVA-2020-DE-1832900

PATIENT

DRUGS (2)
  1. NACL [Concomitant]
     Active Substance: SODIUM CHLORIDE
     Indication: VEHICLE SOLUTION USE
     Dosage: 500 ML ON DAY 1 + 2
     Route: 042
  2. BENDAMUSTINE [Suspect]
     Active Substance: BENDAMUSTINE
     Indication: PLASMA CELL MYELOMA
     Dosage: IN 500 ML NACL 0.9% OVER 30 MINUTES ON DAY 1 + 2
     Route: 042

REACTIONS (2)
  - Intervertebral discitis [Unknown]
  - Abscess [Unknown]
